FAERS Safety Report 9070918 (Version 1)
Quarter: 2013Q1

REPORT INFORMATION
  Report Type: Spontaneous
  Country: US (occurrence: US)
  Receive Date: 20130129
  Receipt Date: 20130129
  Transmission Date: 20140127
  Serious: Yes (Death)
  Sender: FDA-Public Use
  Company Number: US-GLAXOSMITHKLINE-A1009674A

PATIENT
  Age: 62 Year
  Sex: Female

DRUGS (20)
  1. PROMACTA [Suspect]
     Indication: PRODUCT USED FOR UNKNOWN INDICATION
     Dosage: 75MG PER DAY
     Route: 048
  2. FORTEO [Concomitant]
  3. HUMALOG [Concomitant]
  4. REQUIP [Concomitant]
  5. LASIX [Concomitant]
  6. PREDNISONE [Concomitant]
  7. DIOVAN [Concomitant]
  8. LANTUS [Concomitant]
  9. SIMVASTATIN [Concomitant]
  10. DIGOXIN [Concomitant]
  11. FOLIC ACID [Concomitant]
  12. TOPROL XL [Concomitant]
  13. SPIRONOLACTONE [Concomitant]
  14. WARFARIN [Concomitant]
  15. VITAMIN C [Concomitant]
  16. VITAMIN B12 [Concomitant]
  17. FERROUS GLUCONATE [Concomitant]
  18. POTASSIUM [Concomitant]
  19. MAGNESIUM [Concomitant]
  20. VITAMIN D3 [Concomitant]

REACTIONS (1)
  - Death [Fatal]
